FAERS Safety Report 16787293 (Version 1)
Quarter: 2019Q3

REPORT INFORMATION
  Report Type: Spontaneous
  Country: US (occurrence: US)
  Receive Date: 20190909
  Receipt Date: 20190909
  Transmission Date: 20191005
  Serious: Yes (Other)
  Sender: FDA-Public Use
  Company Number: US-ELI_LILLY_AND_COMPANY-US201908014387

PATIENT
  Sex: Male

DRUGS (10)
  1. CIALIS [Suspect]
     Active Substance: TADALAFIL
     Indication: ERECTILE DYSFUNCTION
     Dosage: 10 MG, 2/W
     Route: 065
     Dates: start: 20131031, end: 20141216
  2. CIALIS [Suspect]
     Active Substance: TADALAFIL
     Dosage: 20 MG, 2/W
     Route: 065
     Dates: start: 20131031, end: 20141216
  3. VIAGRA [Suspect]
     Active Substance: SILDENAFIL CITRATE
     Indication: ERECTILE DYSFUNCTION
     Dosage: 2-4 PILLS
     Route: 065
     Dates: start: 1999
  4. BABY ASPIRIN [Concomitant]
     Active Substance: ASPIRIN
     Indication: BLOOD CHOLESTEROL
  5. LEVITRA [Suspect]
     Active Substance: VARDENAFIL HYDROCHLORIDE
     Indication: ERECTILE DYSFUNCTION
     Dosage: 20 MG, 2/W
     Route: 065
     Dates: start: 20071006, end: 20081001
  6. RANITIDINE. [Concomitant]
     Active Substance: RANITIDINE
     Indication: GASTROOESOPHAGEAL REFLUX DISEASE
  7. DOCUSATE SODIUM. [Concomitant]
     Active Substance: DOCUSATE SODIUM
     Indication: LAXATIVE SUPPORTIVE CARE
  8. VIAGRA [Suspect]
     Active Substance: SILDENAFIL CITRATE
     Dosage: 0.5 DOSAGE FORM, 2/W
     Route: 065
     Dates: start: 20120212, end: 20160331
  9. LEVITRA [Suspect]
     Active Substance: VARDENAFIL HYDROCHLORIDE
     Dosage: 20 MG, 2/W
     Route: 065
     Dates: start: 20100611, end: 20120105
  10. VIAGRA [Suspect]
     Active Substance: SILDENAFIL CITRATE
     Dosage: 0.5 DOSAGE FORM, 2/W
     Route: 065
     Dates: start: 20120212, end: 20160331

REACTIONS (5)
  - Blood cholesterol increased [Recovered/Resolved]
  - Basal cell carcinoma [Unknown]
  - Squamous cell carcinoma [Unknown]
  - Malignant melanoma [Unknown]
  - Refraction disorder [Unknown]

NARRATIVE: CASE EVENT DATE: 2008
